FAERS Safety Report 16774589 (Version 1)
Quarter: 2019Q3

REPORT INFORMATION
  Report Type: Spontaneous
  Country: TR (occurrence: TR)
  Receive Date: 20190905
  Receipt Date: 20190905
  Transmission Date: 20191005
  Serious: Yes (Other)
  Sender: FDA-Public Use
  Company Number: TR-ACCORD-153690

PATIENT
  Age: 36 Year
  Sex: Male

DRUGS (2)
  1. MERCAPTOPURINE/MERCAPTOPURINE ANHYDROUS [Suspect]
     Active Substance: MERCAPTOPURINE
     Indication: T-CELL TYPE ACUTE LEUKAEMIA
     Dosage: 6-MERCAPTOPURINE (6-MP) MAINTENANCE THERAPY
     Route: 048
  2. METHOTREXATE. [Suspect]
     Active Substance: METHOTREXATE
     Indication: T-CELL TYPE ACUTE LEUKAEMIA
     Dosage: METHOTREXATE (MTX) MAINTENANCE THERAPY
     Route: 048

REACTIONS (1)
  - Drug-induced liver injury [Recovered/Resolved]
